FAERS Safety Report 7754012-0 (Version None)
Quarter: 2011Q3

REPORT INFORMATION
  Report Type: 
  Country: None (occurrence: None)
  Receive Date: 20110915
  Receipt Date: 20110909
  Transmission Date: 20111222
  Serious: Yes (Death)
  Sender: FDA-Public Use
  Company Number: MX-SANOFI-AVENTIS-2011SA058617

PATIENT
  Age: 62 Year
  Sex: Female

DRUGS (1)
  1. INSULIN GLARGINE [Suspect]
     Indication: DIABETES MELLITUS
     Dosage: 20 UI / A DAY (12 IU IN THE MORNING AND 8 IU AT NIGHT)
     Route: 058
     Dates: end: 20110401

REACTIONS (1)
  - CARDIAC ARREST [None]
